FAERS Safety Report 9016712 (Version 1)
Quarter: 2013Q1

REPORT INFORMATION
  Report Type: Spontaneous
  Country: US (occurrence: US)
  Receive Date: 20130116
  Receipt Date: 20130116
  Transmission Date: 20140127
  Serious: Yes (Death, Other)
  Sender: FDA-Public Use
  Company Number: US-UCBSA-074731

PATIENT
  Age: 37 Year
  Sex: Male

DRUGS (4)
  1. ALPRAZOLAM [Suspect]
  2. ACETAMINOPHEN\HYDROCODONE [Suspect]
  3. PHENTERMINE [Suspect]
  4. FENTANYL [Suspect]

REACTIONS (1)
  - Drug abuse [Fatal]
